FAERS Safety Report 5281639-0 (Version None)
Quarter: 2007Q1

REPORT INFORMATION
  Report Type: 
  Country: None (occurrence: None)
  Receive Date: 20070330
  Receipt Date: 20070319
  Transmission Date: 20070707
  Serious: Yes (Hospitalization)
  Sender: FDA-Public Use
  Company Number: HQWYE154119MAR07

PATIENT
  Sex: Male

DRUGS (3)
  1. ENBREL [Suspect]
     Indication: DRUG USE FOR UNKNOWN INDICATION
     Route: 058
     Dates: end: 20070301
  2. ENBREL [Suspect]
     Dates: start: 20070325
  3. IBUPROFEN [Concomitant]
     Dosage: 400 MG IF REQUIRED

REACTIONS (2)
  - ERYSIPELAS [None]
  - HERPES VIRUS INFECTION [None]
